FAERS Safety Report 22071005 (Version 1)
Quarter: 2023Q1

REPORT INFORMATION
  Report Type: Spontaneous
  Country: US (occurrence: None)
  Receive Date: 20230307
  Receipt Date: 20230307
  Transmission Date: 20230418
  Serious: Yes (Hospitalization, Other)
  Sender: FDA-Public Use
  Company Number: None

PATIENT
  Age: 33 Year
  Sex: Female
  Weight: 126.99 kg

DRUGS (8)
  1. WEGOVY [Suspect]
     Active Substance: SEMAGLUTIDE
     Indication: Weight control
     Dosage: OTHER QUANTITY : 1 INJECTION(S);?OTHER FREQUENCY : ONCE A WEEK;?OTHER ROUTE : INJECTION INTO UPPER T
     Route: 050
     Dates: start: 20230220, end: 20230220
  2. AYGESTIN [Concomitant]
     Active Substance: NORETHINDRONE ACETATE
  3. FETZIMA [Concomitant]
     Active Substance: LEVOMILNACIPRAN HYDROCHLORIDE
  4. VILAZODONE [Concomitant]
     Active Substance: VILAZODONE
  5. METOPROLOL SUCCINATE [Concomitant]
     Active Substance: METOPROLOL SUCCINATE
  6. HYDROCHLOROTHIAZIDE [Concomitant]
     Active Substance: HYDROCHLOROTHIAZIDE
  7. KETAMINE [Concomitant]
     Active Substance: KETAMINE
  8. VITAFUSION WOMEN^S DAILY VITAMIN GUMMIES [Concomitant]

REACTIONS (13)
  - Nausea [None]
  - Insomnia [None]
  - Retching [None]
  - Vomiting [None]
  - Impaired work ability [None]
  - Drug ineffective [None]
  - Diarrhoea [None]
  - Dehydration [None]
  - Fatigue [None]
  - Tremor [None]
  - Chromaturia [None]
  - Headache [None]
  - Constipation [None]

NARRATIVE: CASE EVENT DATE: 20230220
